FAERS Safety Report 8253251-2 (Version None)
Quarter: 2012Q2

REPORT INFORMATION
  Report Type: 
  Country: None (occurrence: None)
  Receive Date: 20120402
  Receipt Date: 20120307
  Transmission Date: 20120825
  Serious: No
  Sender: FDA-Public Use
  Company Number: US-AMGEN-USASP2012015242

PATIENT
  Age: 10 Year
  Sex: Female

DRUGS (1)
  1. ENBREL [Suspect]
     Indication: JUVENILE ARTHRITIS
     Dosage: 25 MG, UNK

REACTIONS (7)
  - MACULAR PIGMENTATION [None]
  - LEUKODERMA [None]
  - IDIOPATHIC GUTTATE HYPOMELANOSIS [None]
  - SKIN DISORDER [None]
  - RASH MACULAR [None]
  - PRURITUS [None]
  - DRY SKIN [None]
